FAERS Safety Report 10301401 (Version 1)
Quarter: 2014Q3

REPORT INFORMATION
  Report Type: Spontaneous
  Country: IT (occurrence: None)
  Receive Date: 20140708
  Receipt Date: 20140708
  Transmission Date: 20150326
  Serious: Yes (Hospitalization)
  Sender: FDA-Public Use
  Company Number: 2421225

PATIENT
  Age: 53 Year
  Sex: Female

DRUGS (4)
  1. TOPIRAMATE. [Suspect]
     Active Substance: TOPIRAMATE
     Indication: PARTIAL SEIZURES
     Dosage: TITRATED UP TO A TOTAL DOSE OF 300 MG/DAY (UNKNOWN)
  2. VALPROIC ACID. [Suspect]
     Active Substance: VALPROIC ACID
     Indication: PARTIAL SEIZURES
  3. MIDAZOLAM [Concomitant]
     Active Substance: MIDAZOLAM\MIDAZOLAM HYDROCHLORIDE
  4. LEVETIRACETAM. [Suspect]
     Active Substance: LEVETIRACETAM
     Indication: PARTIAL SEIZURES
     Dosage: TITRATED RAPIDLY UNTIL 1,000 MG (2 DAY)

REACTIONS (6)
  - Thrombocytopenia [None]
  - Abdominal pain [None]
  - Asthenia [None]
  - Confusional state [None]
  - Somnolence [None]
  - Convulsion [None]
